FAERS Safety Report 5623925-8 (Version None)
Quarter: 2008Q1

REPORT INFORMATION
  Report Type: 
  Country: None (occurrence: None)
  Receive Date: 20080207
  Receipt Date: 20080125
  Transmission Date: 20080703
  Serious: Yes (Other)
  Sender: FDA-Public Use
  Company Number: S08-UKI-00400-01

PATIENT
  Age: 39 Year
  Sex: Female

DRUGS (4)
  1. CITALOPRAM HYDROBROMIDE [Suspect]
     Indication: DEPRESSION
     Dates: start: 20070301, end: 20071129
  2. CITALOPRAM HYDROBROMIDE [Suspect]
     Indication: DEPRESSION
  3. DIAZEPAM [Concomitant]
  4. ZOPICLONE [Concomitant]

REACTIONS (1)
  - CONTUSION [None]
